FAERS Safety Report 16697298 (Version 1)
Quarter: 2019Q4

REPORT INFORMATION
  Report Type: Spontaneous
  Country: US (occurrence: US)
  Receive Date: 20190810
  Receipt Date: 20190810
  Transmission Date: 20200122
  Serious: No
  Sender: FDA-Public Use
  Company Number: None

PATIENT
  Age: 40 Year
  Sex: Male
  Weight: 76 kg

DRUGS (3)
  1. HUMAN RABIES IMMUNE GLOBULIN (BRAND NAME NOT DISCLOSED TO ME) [Suspect]
     Active Substance: HUMAN RABIES VIRUS IMMUNE GLOBULIN
     Indication: IMMUNISATION
     Dosage: ?          OTHER FREQUENCY:ONE INJECTION;?
     Route: 030
     Dates: start: 20190721, end: 20190721
  2. IMOVAX (RABIES VACCINE) [Concomitant]
     Dates: start: 20190721, end: 20190721
  3. HUMAN RABIES IMMUNE GLOBULIN (BRAND NAME NOT DISCLOSED TO ME) [Suspect]
     Active Substance: HUMAN RABIES VIRUS IMMUNE GLOBULIN
     Indication: RABIES
     Dosage: ?          OTHER FREQUENCY:ONE INJECTION;?
     Route: 030
     Dates: start: 20190721, end: 20190721

REACTIONS (3)
  - Product administered at inappropriate site [None]
  - Wrong technique in product usage process [None]
  - Drug monitoring procedure not performed [None]

NARRATIVE: CASE EVENT DATE: 20190721
